FAERS Safety Report 9844704 (Version 2)
Quarter: 2014Q1

REPORT INFORMATION
  Report Type: Spontaneous
  Country: DE (occurrence: DE)
  Receive Date: 20140127
  Receipt Date: 20140317
  Transmission Date: 20141002
  Serious: Yes (Hospitalization, Other)
  Sender: FDA-Public Use
  Company Number: DE-JNJFOC-20140112901

PATIENT
  Age: 81 Year
  Sex: Female
  Weight: 88 kg

DRUGS (67)
  1. XARELTO [Suspect]
     Indication: ATRIAL FIBRILLATION
     Route: 048
     Dates: start: 201304
  2. XARELTO [Suspect]
     Indication: ATRIAL FIBRILLATION
     Route: 048
     Dates: start: 20121015, end: 201304
  3. ACETYLSALICYLIC ACID [Suspect]
     Indication: CARDIOVASCULAR DISORDER
     Route: 048
     Dates: start: 20120322
  4. ACETYLSALICYLIC ACID [Suspect]
     Indication: CARDIOVASCULAR DISORDER
     Route: 048
     Dates: end: 20130305
  5. ACETYLSALICYLIC ACID [Suspect]
     Indication: CARDIOVASCULAR DISORDER
     Route: 048
     Dates: start: 20100303, end: 20110302
  6. ACETYLSALICYLIC ACID [Suspect]
     Indication: CARDIOVASCULAR DISORDER
     Route: 048
     Dates: start: 20080303, end: 20090310
  7. ACETYLSALICYLIC ACID [Suspect]
     Indication: CARDIOVASCULAR DISORDER
     Route: 048
     Dates: start: 20090311, end: 20100302
  8. ACETYLSALICYLIC ACID [Suspect]
     Indication: CARDIOVASCULAR DISORDER
     Route: 048
     Dates: end: 20130304
  9. ACETYLSALICYLIC ACID [Suspect]
     Indication: CARDIOVASCULAR DISORDER
     Route: 048
     Dates: start: 20110303, end: 20120301
  10. ACETYLSALICYLIC ACID [Suspect]
     Indication: CARDIOVASCULAR DISORDER
     Route: 048
     Dates: start: 20120302, end: 20120316
  11. ACETYLSALICYLIC ACID [Suspect]
     Indication: CARDIOVASCULAR EVENT PROPHYLAXIS
     Route: 048
     Dates: start: 20120322
  12. ACETYLSALICYLIC ACID [Suspect]
     Indication: CARDIOVASCULAR EVENT PROPHYLAXIS
     Route: 048
     Dates: start: 20080303, end: 20090310
  13. ACETYLSALICYLIC ACID [Suspect]
     Indication: CARDIOVASCULAR EVENT PROPHYLAXIS
     Route: 048
     Dates: start: 20110303, end: 20120301
  14. ACETYLSALICYLIC ACID [Suspect]
     Indication: CARDIOVASCULAR EVENT PROPHYLAXIS
     Route: 048
     Dates: start: 20100303, end: 20110302
  15. ACETYLSALICYLIC ACID [Suspect]
     Indication: CARDIOVASCULAR EVENT PROPHYLAXIS
     Route: 048
     Dates: start: 20090311, end: 20100302
  16. ACETYLSALICYLIC ACID [Suspect]
     Indication: CARDIOVASCULAR EVENT PROPHYLAXIS
     Route: 048
     Dates: start: 20120302, end: 20120316
  17. ACETYLSALICYLIC ACID [Suspect]
     Indication: CARDIOVASCULAR EVENT PROPHYLAXIS
     Route: 048
     Dates: end: 20130304
  18. ACETYLSALICYLIC ACID [Suspect]
     Indication: CARDIOVASCULAR EVENT PROPHYLAXIS
     Route: 048
     Dates: end: 20130305
  19. ASS [Suspect]
     Indication: CARDIOVASCULAR EVENT PROPHYLAXIS
     Dosage: 100
     Route: 048
     Dates: start: 20130307
  20. METOPROLOL SUCCINATE [Concomitant]
     Indication: HYPERTENSION
     Route: 048
     Dates: start: 20120316
  21. METOPROLOL SUCCINATE [Concomitant]
     Indication: HYPERTENSION
     Route: 048
     Dates: start: 20060831, end: 20120315
  22. SIMVASTATIN [Concomitant]
     Indication: HYPERLIPIDAEMIA
     Route: 048
     Dates: start: 20030917
  23. HYDROCORTISONE ACETATE [Concomitant]
     Indication: HAEMORRHOIDS
     Route: 054
     Dates: start: 20080922, end: 20081007
  24. LIPOTALON [Concomitant]
     Indication: OSTEOARTHRITIS
     Route: 030
  25. LIPOTALON [Concomitant]
     Indication: OSTEOARTHRITIS
     Route: 030
     Dates: start: 20130221, end: 20130221
  26. LIPOTALON [Concomitant]
     Indication: OSTEOARTHRITIS
     Route: 030
     Dates: start: 20130219, end: 20130221
  27. LIPOTALON [Concomitant]
     Indication: OSTEOARTHRITIS
     Route: 030
     Dates: start: 20121001, end: 20121001
  28. LIPOTALON [Concomitant]
     Indication: OSTEOARTHRITIS
     Route: 030
     Dates: start: 20120924, end: 20120924
  29. LIPOTALON [Concomitant]
     Indication: OSTEOARTHRITIS
     Route: 030
     Dates: start: 20120423, end: 20120423
  30. LIPOTALON [Concomitant]
     Indication: OSTEOARTHRITIS
     Route: 030
     Dates: start: 20120419, end: 20120419
  31. LIPOTALON [Concomitant]
     Indication: OSTEOARTHRITIS
     Route: 030
     Dates: start: 20110324, end: 20110324
  32. LIPOTALON [Concomitant]
     Indication: OSTEOARTHRITIS
     Route: 030
     Dates: start: 20101014, end: 20101014
  33. LIPOTALON [Concomitant]
     Indication: OSTEOARTHRITIS
     Route: 030
     Dates: start: 20100322, end: 20100322
  34. LIPOTALON [Concomitant]
     Indication: OSTEOARTHRITIS
     Route: 030
     Dates: start: 20091116, end: 20091116
  35. LIPOTALON [Concomitant]
     Indication: OSTEOARTHRITIS
     Route: 030
     Dates: start: 20090602, end: 20090602
  36. LIPOTALON [Concomitant]
     Indication: OSTEOARTHRITIS
     Route: 030
     Dates: start: 20100423, end: 20120423
  37. LIPOTALON [Concomitant]
     Indication: OSTEOARTHRITIS
     Route: 030
     Dates: start: 20090528, end: 20090528
  38. LIPOTALON [Concomitant]
     Indication: OSTEOARTHRITIS
     Route: 030
     Dates: start: 20090108, end: 20090108
  39. AERIUS [Concomitant]
     Indication: URTICARIA
     Route: 048
     Dates: start: 20090129, end: 20090131
  40. PHENYLBUTAZONE [Concomitant]
     Indication: SPINAL OSTEOARTHRITIS
     Route: 030
     Dates: start: 20090706, end: 20090706
  41. PHENYLBUTAZONE [Concomitant]
     Indication: SPINAL OSTEOARTHRITIS
     Route: 030
     Dates: start: 20110729, end: 20110802
  42. PHENYLBUTAZONE [Concomitant]
     Indication: BACK PAIN
     Route: 030
     Dates: start: 20090706, end: 20090706
  43. PHENYLBUTAZONE [Concomitant]
     Indication: BACK PAIN
     Route: 030
     Dates: start: 20110729, end: 20110802
  44. CIPROFLOXACIN SANDOZ [Concomitant]
     Indication: URINARY TRACT INFECTION
     Route: 048
     Dates: start: 20090707, end: 20090707
  45. CIPROFLOXACIN SANDOZ [Concomitant]
     Indication: URINARY TRACT INFECTION
     Route: 048
  46. INFLUVAC [Concomitant]
     Indication: INFLUENZA IMMUNISATION
     Route: 030
     Dates: start: 20121009, end: 20121009
  47. INFLUVAC [Concomitant]
     Indication: INFLUENZA IMMUNISATION
     Route: 030
     Dates: start: 20091013, end: 20091013
  48. INFLUVAC [Concomitant]
     Indication: INFLUENZA IMMUNISATION
     Route: 030
     Dates: start: 20101005, end: 20101005
  49. INFLUVAC [Concomitant]
     Indication: INFLUENZA IMMUNISATION
     Route: 030
     Dates: start: 20111025, end: 20111025
  50. CODICOMPREN [Concomitant]
     Indication: BRONCHITIS
     Route: 048
     Dates: start: 20091026, end: 20091105
  51. SWINE FLU VACCINE, MONOVALENT [Concomitant]
     Indication: INFLUENZA IMMUNISATION
     Route: 030
     Dates: start: 20091116, end: 20091116
  52. TRIAMHEXAL [Concomitant]
     Indication: RHINITIS ALLERGIC
     Route: 030
     Dates: start: 20100412, end: 20100412
  53. INFLUENZA VACCINE [Concomitant]
     Indication: INFLUENZA IMMUNISATION
     Route: 030
     Dates: start: 20081027, end: 20081027
  54. TRAMABETA [Concomitant]
     Indication: OSTEOARTHRITIS
     Route: 048
     Dates: start: 20101019
  55. TRIAM [Concomitant]
     Indication: RHINITIS ALLERGIC
     Route: 030
     Dates: start: 20110404, end: 20110404
  56. TRIAM [Concomitant]
     Indication: RHINITIS ALLERGIC
     Route: 030
     Dates: start: 20120405, end: 20120405
  57. CIPROFLOXACIN [Concomitant]
     Indication: URINARY TRACT INFECTION
     Route: 048
     Dates: start: 20120213, end: 20120217
  58. MOVICOL [Concomitant]
     Indication: CONSTIPATION
     Route: 048
     Dates: start: 20120130, end: 20120203
  59. RUPATADINE [Concomitant]
     Indication: DERMATITIS
     Route: 048
     Dates: start: 20120514
  60. DERMATOP [Concomitant]
     Indication: DERMATITIS
     Route: 061
     Dates: start: 20120514, end: 20120523
  61. ALFASON CRELO [Concomitant]
     Indication: DERMATITIS
     Route: 061
     Dates: start: 20120524
  62. CLARITHROMYCIN [Concomitant]
     Indication: PNEUMONIA
     Route: 048
     Dates: start: 20120316, end: 20120321
  63. POSTERISAN [Concomitant]
     Indication: HAEMORRHOIDS
     Route: 065
  64. AMOXICILLIN [Concomitant]
     Indication: GASTRITIS EROSIVE
     Route: 048
     Dates: start: 20130405
  65. KLACID /00984601/ [Concomitant]
     Indication: GASTRITIS EROSIVE
     Route: 048
     Dates: start: 20130405
  66. REKAWAN [Concomitant]
     Indication: HYPOKALAEMIA
     Route: 048
     Dates: start: 20130406
  67. PANTOZOL [Concomitant]
     Indication: UPPER GASTROINTESTINAL HAEMORRHAGE
     Route: 048
     Dates: start: 20130405

REACTIONS (5)
  - Cardiac failure [Recovered/Resolved]
  - Atrial fibrillation [Recovered/Resolved]
  - Hypertensive crisis [Recovered/Resolved]
  - Pneumonia [Recovered/Resolved]
  - Upper gastrointestinal haemorrhage [Recovered/Resolved]
